FAERS Safety Report 5306947-6 (Version None)
Quarter: 2007Q2

REPORT INFORMATION
  Report Type: 
  Country: None (occurrence: None)
  Receive Date: 20070419
  Receipt Date: 20070404
  Transmission Date: 20071010
  Serious: Yes (Other)
  Sender: FDA-Public Use
  Company Number: 011675

PATIENT
  Age: 31 Year
  Sex: Male

DRUGS (1)
  1. ADDERALL(DEXTROAMPHETAMINE SACCHARATE, AMPHETAMINE ASPARTATE, DEXTROAM [Suspect]
     Indication: ATTENTION DEFICIT/HYPERACTIVITY DISORDER
     Dosage: 20 MG, QD, ORAL
     Route: 048
     Dates: start: 20070219

REACTIONS (4)
  - GOUT [None]
  - HEPATIC STEATOSIS [None]
  - LIVER DISORDER [None]
  - PAIN IN EXTREMITY [None]
